FAERS Safety Report 9124473 (Version 3)
Quarter: 2013Q2

REPORT INFORMATION
  Report Type: Report from Study
  Country: DE (occurrence: DE)
  Receive Date: 20130227
  Receipt Date: 20130503
  Transmission Date: 20140414
  Serious: Yes (Life-Threatening)
  Sender: FDA-Public Use
  Company Number: DE-ROCHE-1195936

PATIENT
  Age: 64 Year
  Sex: Female
  Weight: 72.5 kg

DRUGS (4)
  1. RITUXIMAB [Suspect]
     Indication: MANTLE CELL LYMPHOMA REFRACTORY
     Route: 065
     Dates: start: 20130220, end: 20130220
  2. BORTEZOMIB [Suspect]
     Indication: MANTLE CELL LYMPHOMA REFRACTORY
     Dosage: CYCLE 1, DAY 1,DATE OF LAST DOSE PRIOR TO SAE: 21/FEB/2013
     Route: 065
     Dates: start: 20130221
  3. ARA-C [Suspect]
     Indication: MANTLE CELL LYMPHOMA REFRACTORY
     Route: 065
     Dates: start: 20130222, end: 20130223
  4. DEXAMETHASONE [Suspect]
     Indication: MANTLE CELL LYMPHOMA REFRACTORY
     Route: 065
     Dates: start: 20130220

REACTIONS (1)
  - Pulmonary embolism [Recovered/Resolved]
